FAERS Safety Report 5411155-4 (Version None)
Quarter: 2007Q3

REPORT INFORMATION
  Report Type: 
  Country: None (occurrence: None)
  Receive Date: 20070810
  Receipt Date: 20070731
  Transmission Date: 20080115
  Serious: Yes (Other)
  Sender: FDA-Public Use
  Company Number: US-JNJFOC-20070601371

PATIENT
  Sex: Female
  Weight: 97.07 kg

DRUGS (3)
  1. REMICADE [Suspect]
     Route: 042
  2. REMICADE [Suspect]
     Route: 042
  3. REMICADE [Suspect]
     Indication: RHEUMATOID ARTHRITIS
     Route: 042

REACTIONS (5)
  - DYSARTHRIA [None]
  - INFLUENZA [None]
  - INFUSION RELATED REACTION [None]
  - PARAESTHESIA [None]
  - PNEUMONIA [None]
